FAERS Safety Report 20679388 (Version 6)
Quarter: 2025Q1

REPORT INFORMATION
  Report Type: Report from Study
  Country: CA (occurrence: CA)
  Receive Date: 20220406
  Receipt Date: 20250120
  Transmission Date: 20250408
  Serious: Yes (Hospitalization, Other)
  Sender: TAKEDA
  Company Number: CA-TAKEDA-2022TUS022654

PATIENT
  Age: 55 Year
  Sex: Female

DRUGS (42)
  1. VEDOLIZUMAB [Suspect]
     Active Substance: VEDOLIZUMAB
     Indication: Crohn^s disease
  2. VEDOLIZUMAB [Suspect]
     Active Substance: VEDOLIZUMAB
  3. VEDOLIZUMAB [Suspect]
     Active Substance: VEDOLIZUMAB
     Dosage: 300 MILLIGRAM, Q7WEEKS
     Dates: start: 20180604
  4. VEDOLIZUMAB [Suspect]
     Active Substance: VEDOLIZUMAB
     Dosage: 300 MILLIGRAM, Q4WEEKS
     Dates: start: 20181218
  5. VEDOLIZUMAB [Suspect]
     Active Substance: VEDOLIZUMAB
     Dosage: 300 MILLIGRAM, Q7WEEKS
  6. VEDOLIZUMAB [Suspect]
     Active Substance: VEDOLIZUMAB
     Dosage: 300 MILLIGRAM, Q7WEEKS
  7. VEDOLIZUMAB [Suspect]
     Active Substance: VEDOLIZUMAB
     Dosage: 300 MILLIGRAM, Q7WEEKS
  8. VEDOLIZUMAB [Suspect]
     Active Substance: VEDOLIZUMAB
     Dosage: 300 MILLIGRAM, Q4WEEKS
     Dates: start: 20220823
  9. VEDOLIZUMAB [Suspect]
     Active Substance: VEDOLIZUMAB
     Dosage: 300 MILLIGRAM, Q4WEEKS
  10. VEDOLIZUMAB [Suspect]
     Active Substance: VEDOLIZUMAB
     Dosage: 300 MILLIGRAM, Q4WEEKS
  11. VEDOLIZUMAB [Suspect]
     Active Substance: VEDOLIZUMAB
     Dosage: 300 MILLIGRAM, Q4WEEKS
     Dates: start: 20230519
  12. VEDOLIZUMAB [Suspect]
     Active Substance: VEDOLIZUMAB
     Indication: Crohn^s disease
  13. PANTOPRAZOLE MAGNESIUM [Suspect]
     Active Substance: PANTOPRAZOLE MAGNESIUM
     Indication: Product used for unknown indication
  14. GABAPENTIN [Concomitant]
     Active Substance: GABAPENTIN
     Dosage: 600 MILLIGRAM, BID
  15. MIRABEGRON [Concomitant]
     Active Substance: MIRABEGRON
  16. ENALAPRIL [Concomitant]
     Active Substance: ENALAPRIL
  17. ENALAPRIL [Concomitant]
     Active Substance: ENALAPRIL
  18. LIPITOR [Concomitant]
     Active Substance: ATORVASTATIN CALCIUM
  19. TRAZODONE [Concomitant]
     Active Substance: TRAZODONE HYDROCHLORIDE
  20. ZOPICLONE [Concomitant]
     Active Substance: ZOPICLONE
  21. DIPHENOXYLATE [Concomitant]
     Active Substance: DIPHENOXYLATE
  22. IRON [Concomitant]
     Active Substance: IRON
  23. HYDROMORPHONE [Concomitant]
     Active Substance: HYDROMORPHONE
  24. ATORVASTATIN [Concomitant]
     Active Substance: ATORVASTATIN
  25. TYLENOL [Concomitant]
     Active Substance: ACETAMINOPHEN
  26. VITAMIN B12 [Concomitant]
     Active Substance: CYANOCOBALAMIN
  27. LORAZEPAM [Concomitant]
     Active Substance: LORAZEPAM
  28. BISOPROLOL [Concomitant]
     Active Substance: BISOPROLOL
  29. CLOPIDOGREL [Concomitant]
     Active Substance: CLOPIDOGREL BISULFATE
  30. AMLODIPINE [Concomitant]
     Active Substance: AMLODIPINE BESYLATE
  31. ZOFRAN [Concomitant]
     Active Substance: ONDANSETRON HYDROCHLORIDE
  32. ISOSORBIDE MONONITRATE [Concomitant]
     Active Substance: ISOSORBIDE MONONITRATE
  33. NITROGLYCERIN [Concomitant]
     Active Substance: NITROGLYCERIN
  34. PANTOPRAZOLE [Concomitant]
     Active Substance: PANTOPRAZOLE
  35. BUTYLSCOPOLAMINE BROMIDE [Concomitant]
     Active Substance: BUTYLSCOPOLAMINE BROMIDE
  36. PROBIOTICS NOS [Concomitant]
     Active Substance: PROBIOTICS NOS
  37. METFORMIN [Concomitant]
     Active Substance: METFORMIN HYDROCHLORIDE
  38. ASPIRIN [Concomitant]
     Active Substance: ASPIRIN
  39. LYRICA [Concomitant]
     Active Substance: PREGABALIN
  40. PLAVIX [Concomitant]
     Active Substance: CLOPIDOGREL BISULFATE
  41. RANOLAZINE [Concomitant]
     Active Substance: RANOLAZINE
  42. JARDIANCE [Concomitant]
     Active Substance: EMPAGLIFLOZIN

REACTIONS (8)
  - Crohn^s disease [Unknown]
  - Diverticulitis [Unknown]
  - Intestinal perforation [Unknown]
  - Intestinal obstruction [Unknown]
  - Drug ineffective [Unknown]
  - Abdominal pain upper [Recovered/Resolved]
  - Anal incontinence [Unknown]
  - Off label use [Unknown]

NARRATIVE: CASE EVENT DATE: 20170829
